FAERS Safety Report 5344585-X (Version None)
Quarter: 2007Q2

REPORT INFORMATION
  Report Type: 
  Country: None (occurrence: None)
  Receive Date: 20070604
  Receipt Date: 20070524
  Transmission Date: 20071010
  Serious: Yes (Congenital Anomaly)
  Sender: FDA-Public Use
  Company Number: DE-GILEAD-2007-0012160

PATIENT
  Sex: Male

DRUGS (5)
  1. VIREAD [Suspect]
     Indication: HIV INFECTION
     Route: 048
     Dates: end: 20061015
  2. COMBIVIR [Suspect]
     Indication: HIV INFECTION
     Route: 048
     Dates: end: 20061015
  3. COMBIVIR [Suspect]
     Route: 048
     Dates: start: 20061220
  4. KALETRA [Suspect]
     Route: 048
     Dates: start: 20061220
  5. ZIDOVUDINE [Concomitant]
     Route: 064
     Dates: start: 20070419, end: 20070419

REACTIONS (2)
  - CONGENITAL HYDROCEPHALUS [None]
  - DRUG EXPOSURE DURING PREGNANCY [None]
